FAERS Safety Report 7963713-0 (Version None)
Quarter: 2011Q4

REPORT INFORMATION
  Report Type: 
  Country: None (occurrence: None)
  Receive Date: 20111122
  Receipt Date: 20110728
  Transmission Date: 20120403
  Serious: No
  Sender: FDA-Public Use
  Company Number: PHHY2011US55810

PATIENT
  Age: 56 Year
  Sex: Female
  Weight: 72.6 kg

DRUGS (5)
  1. GILENYA [Suspect]
     Indication: RELAPSING-REMITTING MULTIPLE SCLEROSIS
     Dosage: 0.5 MG, DAILY, ORAL
     Route: 048
     Dates: start: 20110609
  2. LISINOPRIL [Concomitant]
  3. SIMVASTATIN [Concomitant]
  4. IBUPROFEN [Concomitant]
  5. TRIAMTERENE AND HYDROCHLOROTHIAZID (HYDROCHLOROTHIAZIDE, TRIAMTERENE) [Concomitant]

REACTIONS (3)
  - NAUSEA [None]
  - FATIGUE [None]
  - HEART RATE DECREASED [None]
